FAERS Safety Report 25011750 (Version 3)
Quarter: 2025Q4

REPORT INFORMATION
  Report Type: Report from Study
  Country: EU (occurrence: EU)
  Receive Date: 20250226
  Receipt Date: 20251212
  Transmission Date: 20260117
  Serious: Yes (Death, Other)
  Sender: TAKEDA
  Company Number: EU-TAKEDA-2025TUS019897

PATIENT
  Age: 70 Year
  Sex: Male
  Weight: 77 kg

DRUGS (1)
  1. BRIGATINIB [Suspect]
     Active Substance: BRIGATINIB
     Indication: Non-small cell lung cancer
     Dosage: 180 MILLIGRAM, QD
     Dates: start: 20231012

REACTIONS (2)
  - Non-small cell lung cancer [Fatal]
  - Bronchial carcinoma [Fatal]
